FAERS Safety Report 9026514 (Version 3)
Quarter: 2013Q3

REPORT INFORMATION
  Report Type: Spontaneous
  Country: GB (occurrence: None)
  Receive Date: 20130107
  Receipt Date: 20130812
  Transmission Date: 20140515
  Serious: Yes (Hospitalization)
  Sender: FDA-Public Use
  Company Number: 2012SGN00601

PATIENT
  Age: 52 Year
  Sex: Female

DRUGS (10)
  1. BRENTUXIMAB VEDOTIN [Suspect]
     Indication: ANAPLASTIC LARGE-CELL LYMPHOMA
     Route: 042
     Dates: start: 20120216, end: 20121219
  2. CYCLOPHOSPHAMIDE (CYCLOPHOSPHAMIDE) [Suspect]
     Indication: ANAPLASTIC LARGE-CELL LYMPHOMA
     Dosage: 750 MG/M2, Q21D, INTRAVENOUS
     Route: 042
     Dates: start: 20120328, end: 20120711
  3. DOXORUBICIN (DOXORUBICIN) (DOXORUBICIN) [Suspect]
     Indication: ANAPLASTIC LARGE-CELL LYMPHOMA
     Dosage: 50 MG/M2, Q21D, INTRAVENOUS
     Route: 042
     Dates: start: 20120328, end: 20120711
  4. VINCRISTINE [Suspect]
     Indication: ANAPLASTIC LARGE-CELL LYMPHOMA
     Dosage: 1.4 MG/M2, Q21D, INTRAVENOUS
     Route: 042
     Dates: start: 20120328, end: 20120711
  5. PREDNISONE (PREDNISONE) [Suspect]
     Indication: ANAPLASTIC LARGE-CELL LYMPHOMA
     Dosage: 100 MG, Q21D, ORAL
     Route: 048
     Dates: start: 20120328, end: 20120715
  6. MUCAINE (ALUMINUM HYDROXIDE GEL, MAGNESIUM HYDROXIDE, OXTACAINE) [Concomitant]
  7. SODIUM CHLORIDE [Concomitant]
  8. NYSTATIN (NYSTATIN) [Concomitant]
  9. DOMPERIDONE (DOMPERIDONE) [Concomitant]
  10. BETNOVATE (BETAMETHASONE) [Concomitant]

REACTIONS (3)
  - Sepsis [None]
  - Febrile neutropenia [None]
  - Stomatitis [None]
